FAERS Safety Report 9380661 (Version 1)
Quarter: 2013Q3

REPORT INFORMATION
  Report Type: Spontaneous
  Country: ES (occurrence: ES)
  Receive Date: 20130702
  Receipt Date: 20130702
  Transmission Date: 20140515
  Serious: Yes (Life-Threatening, Hospitalization)
  Sender: FDA-Public Use
  Company Number: CHNY2013ES001406

PATIENT
  Age: 83 Year
  Sex: Female

DRUGS (10)
  1. VOLTAREN EMULGEL [Suspect]
     Indication: PAIN
     Dosage: UNK UNK, TID
     Route: 003
     Dates: start: 201304, end: 20130410
  2. IBUPROFEN [Suspect]
     Indication: PAIN
     Dosage: 600 MG, TID
     Route: 048
     Dates: start: 201304, end: 20130410
  3. CLOPIDOGREL [Suspect]
     Indication: MYOCARDIAL ISCHAEMIA
     Dosage: 75 MG, QD
     Route: 048
     Dates: start: 201302, end: 20130410
  4. FUROSEMIDE [Suspect]
     Indication: MYOCARDIAL ISCHAEMIA
     Dosage: 40 MG, QD
     Route: 048
     Dates: start: 201302, end: 20130410
  5. ACETYLSALICYLIC ACID [Suspect]
     Indication: MYOCARDIAL ISCHAEMIA
     Dosage: 100 MG, QD
     Route: 048
     Dates: start: 201302, end: 20130410
  6. ENALAPRIL [Suspect]
     Indication: MYOCARDIAL ISCHAEMIA
     Dosage: 2.5 MG, QD
     Route: 048
     Dates: start: 201302, end: 20130410
  7. CAFINITRINA [Concomitant]
  8. OMEPRAZOLE [Concomitant]
  9. CARVEDILOL [Concomitant]
  10. SIMVASTATIN [Concomitant]

REACTIONS (1)
  - Renal failure acute [Recovered/Resolved]
